FAERS Safety Report 9023761 (Version 1)
Quarter: 2013Q1

REPORT INFORMATION
  Report Type: Report from Study
  Country: FR (occurrence: FR)
  Receive Date: 20130121
  Receipt Date: 20130121
  Transmission Date: 20140127
  Serious: Yes (Other)
  Sender: FDA-Public Use
  Company Number: FR-JNJFOC-20130109316

PATIENT
  Sex: Male

DRUGS (1)
  1. NICORETTE MICROTAB [Suspect]
     Indication: SMOKING CESSATION THERAPY
     Route: 002
     Dates: start: 2004

REACTIONS (3)
  - Intentional drug misuse [Unknown]
  - Nicotine dependence [Not Recovered/Not Resolved]
  - Drug ineffective [Unknown]
